FAERS Safety Report 6423590-6 (Version None)
Quarter: 2009Q4

REPORT INFORMATION
  Report Type: 
  Country: None (occurrence: None)
  Receive Date: 20091030
  Receipt Date: 20091030
  Transmission Date: 20100525
  Serious: No
  Sender: FDA-Public Use
  Company Number: None

PATIENT
  Sex: Female
  Weight: 54.4316 kg

DRUGS (1)
  1. ADDERALL 20 [Suspect]
     Indication: DEPRESSION
     Dosage: 20MG 3 TIMES A DAY PO
     Route: 048
     Dates: start: 20091029, end: 20091029

REACTIONS (2)
  - DYSPNOEA [None]
  - PRODUCT QUALITY ISSUE [None]
